FAERS Safety Report 9200030 (Version 1)
Quarter: 2013Q1

REPORT INFORMATION
  Report Type: Spontaneous
  Country: DK (occurrence: DK)
  Receive Date: 20130329
  Receipt Date: 20130329
  Transmission Date: 20140127
  Serious: Yes (Death, Life-Threatening)
  Sender: FDA-Public Use
  Company Number: DK-GLAXOSMITHKLINE-B0879077A

PATIENT
  Age: 43 Year
  Sex: Male

DRUGS (11)
  1. LAMICTAL [Suspect]
     Indication: EPILEPSY
     Route: 048
  2. LEPONEX [Suspect]
     Indication: BIPOLAR DISORDER
     Route: 048
     Dates: start: 19981118
  3. ANAFRANIL [Suspect]
     Indication: PRODUCT USED FOR UNKNOWN INDICATION
     Route: 048
     Dates: start: 19981118
  4. TRILEPTAL [Suspect]
     Indication: PRODUCT USED FOR UNKNOWN INDICATION
     Route: 048
  5. DEPRAKINE /00228501/ [Suspect]
     Indication: EPILEPSY
     Route: 048
  6. FELODIPINE [Concomitant]
  7. STILNOCT [Concomitant]
  8. OXAZEPAM [Concomitant]
     Dosage: 15MG THREE TIMES PER DAY
  9. DOGMATIL [Concomitant]
     Dosage: 600MG THREE TIMES PER DAY
  10. CORODIL [Concomitant]
     Dosage: 20MG TWICE PER DAY
  11. SERENASE [Concomitant]
     Dosage: 2MG PER DAY
     Route: 048

REACTIONS (8)
  - Sudden death [Fatal]
  - Cardiac arrest [Unknown]
  - Loss of consciousness [Unknown]
  - Agitation [Unknown]
  - Accidental overdose [Unknown]
  - Aggression [Unknown]
  - Medication error [Unknown]
  - Poisoning [None]
